FAERS Safety Report 20664189 (Version 1)
Quarter: 2022Q2

REPORT INFORMATION
  Report Type: Spontaneous
  Country: US (occurrence: None)
  Receive Date: 20220401
  Receipt Date: 20220401
  Transmission Date: 20220721
  Serious: Yes (Hospitalization)
  Sender: FDA-Public Use
  Company Number: None

PATIENT
  Sex: Male

DRUGS (1)
  1. OCTREOTIDE [Suspect]
     Active Substance: OCTREOTIDE
     Indication: Pyrexia
     Dosage: 100MCG/ML?INJECT 1 ML (100 MCG) UNDER THE SKIN (SUBCUTANEOUS  INJECTION) THREE TIMES DAILY FOR 10 DA
     Route: 058

REACTIONS (1)
  - Adverse drug reaction [None]
